FAERS Safety Report 9091687 (Version 1)
Quarter: 2013Q1

REPORT INFORMATION
  Report Type: Report from Study
  Country: US (occurrence: US)
  Receive Date: 20130131
  Receipt Date: 20130131
  Transmission Date: 20140127
  Serious: No
  Sender: FDA-Public Use
  Company Number: US-ABBOTT-12P-163-1006964-00

PATIENT
  Sex: Female

DRUGS (8)
  1. HUMIRA [Suspect]
     Indication: RHEUMATOID ARTHRITIS
     Dates: start: 2011
  2. AMBIEN [Concomitant]
     Indication: INSOMNIA
  3. GABAPENTIN [Concomitant]
     Indication: PAIN
  4. CYMBALTA [Concomitant]
     Indication: DEPRESSION
  5. PROMETHAZINE [Concomitant]
     Indication: HYPERSENSITIVITY
  6. SOMA [Concomitant]
     Indication: PAIN
  7. TRAMADOL [Concomitant]
     Indication: PAIN
  8. VISTARIL [Concomitant]
     Indication: ANXIETY

REACTIONS (1)
  - Rash [Not Recovered/Not Resolved]
